FAERS Safety Report 9159483 (Version 1)
Quarter: 2013Q1

REPORT INFORMATION
  Report Type: Spontaneous
  Country: US (occurrence: None)
  Receive Date: 20130312
  Receipt Date: 20130312
  Transmission Date: 20140127
  Serious: Yes (Other)
  Sender: FDA-Public Use
  Company Number: None

PATIENT
  Age: 59 Year
  Sex: Female
  Weight: 54.43 kg

DRUGS (1)
  1. ALDARA [Suspect]
     Indication: BASOSQUAMOUS CARCINOMA
     Dosage: PIN HEAD SIZE, QD 5 DAYS 6 WEEKS
     Route: 061
     Dates: start: 20130206, end: 20130307

REACTIONS (3)
  - Dizziness [None]
  - Dizziness [None]
  - Balance disorder [None]
